FAERS Safety Report 9282905 (Version 1)
Quarter: 2013Q2

REPORT INFORMATION
  Report Type: Spontaneous
  Country: US (occurrence: US)
  Receive Date: 20130510
  Receipt Date: 20130510
  Transmission Date: 20140414
  Serious: Yes (Hospitalization)
  Sender: FDA-Public Use
  Company Number: US-SANOFI-AVENTIS-2013SA046472

PATIENT
  Age: 20 Year
  Sex: Female

DRUGS (23)
  1. LANTUS [Suspect]
     Indication: TYPE 1 DIABETES MELLITUS
     Dosage: DOSE:30 UNIT(S)
     Route: 065
  2. LANTUS [Suspect]
     Indication: DIABETIC KETOACIDOSIS
     Dosage: DOSE:30 UNIT(S)
     Route: 065
  3. LANTUS [Suspect]
     Indication: TYPE 1 DIABETES MELLITUS
     Dosage: DOSE:30 UNIT(S)
     Route: 065
  4. LANTUS [Suspect]
     Indication: DIABETIC KETOACIDOSIS
     Dosage: DOSE:30 UNIT(S)
     Route: 065
  5. LANTUS [Suspect]
     Indication: TYPE 1 DIABETES MELLITUS
     Dosage: DOSE:30 UNIT(S)
     Route: 065
  6. LANTUS [Suspect]
     Indication: DIABETIC KETOACIDOSIS
     Dosage: DOSE:30 UNIT(S)
     Route: 065
  7. LANTUS [Suspect]
     Indication: TYPE 1 DIABETES MELLITUS
     Dosage: DOSE:30 UNIT(S)
     Route: 065
  8. LANTUS [Suspect]
     Indication: DIABETIC KETOACIDOSIS
     Dosage: DOSE:30 UNIT(S)
     Route: 065
  9. LANTUS [Suspect]
     Indication: TYPE 1 DIABETES MELLITUS
     Dosage: DOSE:30 UNIT(S)
     Route: 065
  10. LANTUS [Suspect]
     Indication: DIABETIC KETOACIDOSIS
     Dosage: DOSE:30 UNIT(S)
     Route: 065
  11. INSULIN LISPRO [Suspect]
     Indication: TYPE 1 DIABETES MELLITUS
     Dosage: GIVEN WITH MEALS, BOLUS DOSE:5 UNIT(S)
     Route: 065
  12. INSULIN LISPRO [Suspect]
     Indication: DIABETIC KETOACIDOSIS
     Dosage: GIVEN WITH MEALS, BOLUS DOSE:5 UNIT(S)
     Route: 065
  13. INSULIN LISPRO [Suspect]
     Indication: TYPE 1 DIABETES MELLITUS
     Dosage: GIVEN WITH MEALS DOSE:7 UNIT(S)
     Route: 065
  14. INSULIN LISPRO [Suspect]
     Indication: DIABETIC KETOACIDOSIS
     Dosage: GIVEN WITH MEALS DOSE:7 UNIT(S)
     Route: 065
  15. INSULIN LISPRO [Suspect]
     Indication: TYPE 1 DIABETES MELLITUS
     Dosage: GIVEN WITH MEALS DOSE:5 UNIT(S)
     Route: 065
  16. INSULIN LISPRO [Suspect]
     Indication: DIABETIC KETOACIDOSIS
     Dosage: GIVEN WITH MEALS DOSE:5 UNIT(S)
     Route: 065
  17. INSULIN LISPRO [Suspect]
     Indication: TYPE 1 DIABETES MELLITUS
     Dosage: GIVEN WITH MEALS DOSE:7 UNIT(S)
     Route: 065
  18. INSULIN LISPRO [Suspect]
     Indication: DIABETIC KETOACIDOSIS
     Dosage: GIVEN WITH MEALS DOSE:7 UNIT(S)
     Route: 065
  19. INSULIN LISPRO [Suspect]
     Indication: TYPE 1 DIABETES MELLITUS
     Dosage: GIVEN WITH MEALS DOSE:5 UNIT(S)
     Route: 065
  20. INSULIN LISPRO [Suspect]
     Indication: DIABETIC KETOACIDOSIS
     Dosage: GIVEN WITH MEALS DOSE:5 UNIT(S)
     Route: 065
  21. NORMAL SALINE [Concomitant]
  22. INSULIN [Concomitant]
     Dosage: 6 UNITS/HR
     Route: 041
  23. LISINOPRIL [Concomitant]

REACTIONS (10)
  - Generalised oedema [Recovered/Resolved]
  - Dyspnoea [Recovered/Resolved]
  - Weight increased [Recovered/Resolved]
  - Rales [Recovered/Resolved]
  - Oedema [Recovered/Resolved]
  - Oedema peripheral [Recovered/Resolved]
  - Hepatic enzyme increased [Recovered/Resolved]
  - Blood alkaline phosphatase increased [Recovered/Resolved]
  - Aspartate aminotransferase increased [Recovered/Resolved]
  - Alanine aminotransferase increased [Recovered/Resolved]
